FAERS Safety Report 6097758-5 (Version None)
Quarter: 2009Q1

REPORT INFORMATION
  Report Type: 
  Country: None (occurrence: None)
  Receive Date: 20090227
  Receipt Date: 20090213
  Transmission Date: 20090719
  Serious: Yes (Other)
  Sender: FDA-Public Use
  Company Number: HU-GENENTECH-277814

PATIENT
  Age: 36 Year
  Sex: Female

DRUGS (1)
  1. HERCEPTIN [Suspect]
     Indication: BREAST CANCER
     Dosage: 530 MG, Q3W
     Dates: start: 20080423

REACTIONS (1)
  - ABORTION MISSED [None]
